FAERS Safety Report 7399010-4 (Version None)
Quarter: 2011Q2

REPORT INFORMATION
  Report Type: 
  Country: None (occurrence: None)
  Receive Date: 20110407
  Receipt Date: 20110224
  Transmission Date: 20111010
  Serious: Yes (Death, Hospitalization)
  Sender: FDA-Public Use
  Company Number: JP-BAYER-201013868BYL

PATIENT
  Age: 66 Year
  Sex: Male

DRUGS (5)
  1. ASPIRIN [Concomitant]
     Dosage: DAILY DOSE 100 MG
     Route: 048
  2. TAKEPRON [Concomitant]
     Dosage: DAILY DOSE 30 MG
     Route: 048
  3. HIRUDOID [Concomitant]
     Dosage: UNK
     Route: 061
     Dates: start: 20100614, end: 20100804
  4. UREPEARL [Concomitant]
     Indication: PROPHYLAXIS
     Dosage: UNK
     Route: 061
     Dates: start: 20100614, end: 20100804
  5. NEXAVAR [Suspect]
     Indication: HEPATIC NEOPLASM MALIGNANT
     Dosage: 200 MG, BID
     Route: 048
     Dates: start: 20100625, end: 20100804

REACTIONS (6)
  - HYPERTENSION [None]
  - HEPATIC CANCER METASTATIC [None]
  - NAUSEA [None]
  - DECREASED APPETITE [None]
  - PAIN [None]
  - RESPIRATORY FAILURE [None]
